FAERS Safety Report 20864708 (Version 1)
Quarter: 2022Q2

REPORT INFORMATION
  Report Type: Spontaneous
  Country: QA (occurrence: QA)
  Receive Date: 20220524
  Receipt Date: 20220524
  Transmission Date: 20220721
  Serious: Yes (Other)
  Sender: FDA-Public Use
  Company Number: QA-NAARI PTE LIMITED-2022NP000031

PATIENT
  Age: 62 Year
  Sex: Female

DRUGS (1)
  1. NORETHINDRONE [Suspect]
     Active Substance: NORETHINDRONE
     Indication: Postmenopausal haemorrhage
     Dosage: 5 MILLIGRAM, BID (TWICE DAILY)
     Route: 048

REACTIONS (2)
  - Drug-induced liver injury [Recovered/Resolved]
  - Drug-induced liver injury [Recovered/Resolved]
